FAERS Safety Report 23314602 (Version 1)
Quarter: 2023Q4

REPORT INFORMATION
  Report Type: Spontaneous
  Country: FR (occurrence: FR)
  Receive Date: 20231219
  Receipt Date: 20231219
  Transmission Date: 20240109
  Serious: Yes (Hospitalization)
  Sender: FDA-Public Use
  Company Number: FR-SUN PHARMACEUTICAL INDUSTRIES LTD-2023RR-423475

PATIENT
  Age: 73 Year
  Sex: Female
  Weight: 98 kg

DRUGS (5)
  1. ALLOPURINOL [Interacting]
     Active Substance: ALLOPURINOL
     Indication: Gouty arthritis
     Dosage: 200 MILLIGRAM, DAILY
     Route: 048
     Dates: start: 20230719
  2. ALLOPURINOL [Interacting]
     Active Substance: ALLOPURINOL
     Dosage: 100 MILLIGRAM, DAILY
     Route: 048
     Dates: start: 20230627, end: 20230718
  3. XARELTO [Suspect]
     Active Substance: RIVAROXABAN
     Indication: Protein S deficiency
     Dosage: 10 MILLIGRAM, DAILY
     Route: 048
     Dates: end: 20230817
  4. COLCHICINE [Interacting]
     Active Substance: COLCHICINE
     Indication: Gouty arthritis
     Dosage: 0.5 MILLIGRAM, 1DOSE/AS NECESSARY
     Route: 048
     Dates: start: 20230715
  5. COLCHICINE [Interacting]
     Active Substance: COLCHICINE
     Route: 048
     Dates: start: 20230627, end: 20230714

REACTIONS (1)
  - Haematoma [Recovering/Resolving]

NARRATIVE: CASE EVENT DATE: 20230801
